FAERS Safety Report 8008930-9 (Version None)
Quarter: 2011Q4

REPORT INFORMATION
  Report Type: 
  Country: None (occurrence: None)
  Receive Date: 20111227
  Receipt Date: 20111220
  Transmission Date: 20120403
  Serious: Yes (Other)
  Sender: FDA-Public Use
  Company Number: CH-ROCHE-1023819

PATIENT
  Age: 70 Year
  Sex: Female
  Weight: 88 kg

DRUGS (2)
  1. XENICAL [Suspect]
     Indication: OBESITY
     Route: 048
     Dates: start: 20110804, end: 20111005
  2. LOSARTAN POTASSIUM [Concomitant]
     Indication: HYPERTENSION
     Route: 048
     Dates: start: 20110506, end: 20111111

REACTIONS (4)
  - PALPITATIONS [None]
  - CHEST DISCOMFORT [None]
  - HEART RATE INCREASED [None]
  - HYPERTENSION [None]
